FAERS Safety Report 9022090 (Version 1)
Quarter: 2013Q1

REPORT INFORMATION
  Report Type: Spontaneous
  Country: FR (occurrence: FR)
  Receive Date: 20130118
  Receipt Date: 20130118
  Transmission Date: 20140127
  Serious: Yes (Hospitalization)
  Sender: FDA-Public Use
  Company Number: FR-GLAXOSMITHKLINE-B0857758A

PATIENT
  Age: 75 None
  Sex: Female

DRUGS (6)
  1. ZOPHREN [Suspect]
     Indication: VOMITING
     Route: 048
     Dates: start: 20121023
  2. EUPANTOL [Suspect]
     Indication: PRODUCT USED FOR UNKNOWN INDICATION
     Dosage: 20MG PER DAY
     Route: 048
     Dates: start: 20121022, end: 20121023
  3. PRIMPERAN [Suspect]
     Indication: VOMITING
     Route: 048
     Dates: start: 20121023
  4. XARELTO [Concomitant]
     Route: 048
     Dates: start: 20121022
  5. LEVOTHYROX [Concomitant]
     Route: 065
  6. NON STEROID ANTI INFLAMMATORY DRUG [Concomitant]
     Route: 065
     Dates: start: 20121022

REACTIONS (4)
  - Hyponatraemia [Recovered/Resolved]
  - Coma [Recovered/Resolved]
  - Confusional state [Recovered/Resolved]
  - Aphasia [Recovered/Resolved]
